FAERS Safety Report 8310851-9 (Version None)
Quarter: 2012Q2

REPORT INFORMATION
  Report Type: 
  Country: None (occurrence: None)
  Receive Date: 20120425
  Receipt Date: 20100920
  Transmission Date: 20120825
  Serious: Yes (Death)
  Sender: FDA-Public Use
  Company Number: FR-ROCHE-717721

PATIENT
  Sex: Male
  Weight: 66 kg

DRUGS (1)
  1. XELODA [Suspect]
     Indication: COLON CANCER METASTATIC
     Dosage: FOR 14 DAYS
     Route: 048
     Dates: start: 20100712, end: 20100718

REACTIONS (3)
  - DIHYDROPYRIMIDINE DEHYDROGENASE DEFICIENCY [None]
  - MUCOSAL INFLAMMATION [None]
  - BONE MARROW FAILURE [None]
